FAERS Safety Report 9846207 (Version 1)
Quarter: 2014Q1

REPORT INFORMATION
  Report Type: Spontaneous
  Country: GB (occurrence: GB)
  Receive Date: 20140127
  Receipt Date: 20140127
  Transmission Date: 20141002
  Serious: Yes (Other)
  Sender: FDA-Public Use
  Company Number: GB-PFIZER INC-2014019305

PATIENT
  Sex: Male

DRUGS (1)
  1. AXITINIB [Suspect]
     Dosage: UNK
     Dates: start: 20131103

REACTIONS (2)
  - Myocardial infarction [Unknown]
  - Cardiac arrest [Unknown]
